FAERS Safety Report 5013935-6 (Version None)
Quarter: 2006Q2

REPORT INFORMATION
  Report Type: 
  Country: None (occurrence: None)
  Receive Date: 20060526
  Receipt Date: 20060526
  Transmission Date: 20061013
  Serious: Yes (Other)
  Sender: FDA-Public Use
  Company Number: None

PATIENT
  Age: 48 Year
  Sex: Male
  Weight: 74 kg

DRUGS (3)
  1. DEPODUR [Suspect]
     Indication: KNEE ARTHROPLASTY
     Dosage: 12MG   X1   EPIDURAL
     Route: 008
     Dates: start: 20060413, end: 20060415
  2. DEPODUR [Suspect]
     Indication: POSTOPERATIVE ANALGESIA
     Dosage: 12MG   X1   EPIDURAL
     Route: 008
     Dates: start: 20060413, end: 20060415
  3. SCOPOLAMINE PATCH [Suspect]
     Indication: ANTIEMETIC SUPPORTIVE CARE
     Dosage: X1    TRANSDERMAL
     Route: 062
     Dates: start: 20060413, end: 20060415

REACTIONS (8)
  - APNOEA [None]
  - BRADYCARDIA [None]
  - HALLUCINATION [None]
  - HYPOKALAEMIA [None]
  - RENAL FAILURE ACUTE [None]
  - RENAL TUBULAR NECROSIS [None]
  - RESPIRATORY DEPRESSION [None]
  - SEDATION [None]
